FAERS Safety Report 8366535-4 (Version None)
Quarter: 2012Q2

REPORT INFORMATION
  Report Type: 
  Country: None (occurrence: None)
  Receive Date: 20120517
  Receipt Date: 20120514
  Transmission Date: 20120825
  Serious: Yes (Death, Hospitalization)
  Sender: FDA-Public Use
  Company Number: GB-US-EMD SERONO, INC.-7132644

PATIENT
  Sex: Male

DRUGS (1)
  1. REBIF [Suspect]
     Indication: PRODUCT USED FOR UNKNOWN INDICATION
     Route: 058
     Dates: start: 20070702, end: 20120508

REACTIONS (5)
  - WHITE BLOOD CELL COUNT DECREASED [None]
  - CARDIAC ENZYMES INCREASED [None]
  - PULMONARY EMBOLISM [None]
  - INTESTINAL GANGRENE [None]
  - FALL [None]
